FAERS Safety Report 5241673-3 (Version None)
Quarter: 2007Q1

REPORT INFORMATION
  Report Type: 
  Country: None (occurrence: None)
  Receive Date: 20070220
  Receipt Date: 20070206
  Transmission Date: 20070707
  Serious: Yes (Hospitalization)
  Sender: FDA-Public Use
  Company Number: US-ELI_LILLY_AND_COMPANY-US200603001874

PATIENT
  Age: 65 Year
  Sex: Female

DRUGS (4)
  1. FORTEO [Suspect]
     Indication: OSTEOPOROSIS
     Dosage: 20 UG, UNK
     Dates: start: 20060221, end: 20060401
  2. FORTEO [Suspect]
     Dosage: UNK D/F, UNK
     Dates: start: 20040811, end: 20051001
  3. FORTEO [Suspect]
     Dosage: UNK D/F, UNK
     Dates: start: 20060201, end: 20060307
  4. FORTEO [Suspect]
     Dosage: UNK D/F, UNK

REACTIONS (13)
  - ARTHRALGIA [None]
  - ARTHRITIS [None]
  - BACK PAIN [None]
  - IMMUNE SYSTEM DISORDER [None]
  - INFLUENZA LIKE ILLNESS [None]
  - INJECTION SITE ERYTHEMA [None]
  - LYMPH NODE PAIN [None]
  - LYMPHADENECTOMY [None]
  - LYMPHADENOPATHY [None]
  - MALAISE [None]
  - MOBILITY DECREASED [None]
  - NERVOUSNESS [None]
  - PAIN [None]
